APPROVED DRUG PRODUCT: ALMOTRIPTAN MALATE
Active Ingredient: ALMOTRIPTAN MALATE
Strength: EQ 6.25MG BASE
Dosage Form/Route: TABLET;ORAL
Application: A205523 | Product #001 | TE Code: AB
Applicant: AJANTA PHARMA LTD
Approved: Mar 3, 2016 | RLD: No | RS: No | Type: RX